FAERS Safety Report 6915223-7 (Version None)
Quarter: 2010Q3

REPORT INFORMATION
  Report Type: 
  Country: None (occurrence: None)
  Receive Date: 20100805
  Receipt Date: 20100805
  Transmission Date: 20110219
  Serious: Yes (Other)
  Sender: FDA-Public Use
  Company Number: None

PATIENT
  Sex: Female
  Weight: 63.5036 kg

DRUGS (1)
  1. CREST PROHEALTH ORAL RINSE PROCTER AND GAMBLE [Suspect]
     Dosage: RINSE 2X DAILY USED WITH WATERPIK
     Route: 048

REACTIONS (2)
  - GINGIVAL DISCOLOURATION [None]
  - TOOTH DISCOLOURATION [None]
